FAERS Safety Report 10226786 (Version 2)
Quarter: 2014Q2

REPORT INFORMATION
  Report Type: Report from Study
  Country: US (occurrence: US)
  Receive Date: 20140610
  Receipt Date: 20140610
  Transmission Date: 20141212
  Serious: Yes (Hospitalization)
  Sender: FDA-Public Use
  Company Number: US-ROCHE-639150

PATIENT
  Age: 43 Year
  Sex: Female
  Weight: 69.2 kg

DRUGS (26)
  1. TRASTUZUMAB EMTANSINE [Suspect]
     Indication: BREAST CANCER METASTATIC
     Dosage: LAST DOSE ON: 10/JUN/2009
     Route: 042
  2. TRASTUZUMAB EMTANSINE [Suspect]
     Route: 042
  3. BACLOFEN [Concomitant]
     Indication: MYALGIA
     Route: 065
  4. DULCOLAX (BISACODYL) [Concomitant]
     Indication: CONSTIPATION
     Route: 065
  5. CELEBREX [Concomitant]
     Indication: PAIN
     Route: 065
     Dates: start: 20080414, end: 20100405
  6. COLACE [Concomitant]
     Indication: PRODUCT USED FOR UNKNOWN INDICATION
  7. ARICEPT [Concomitant]
     Indication: COGNITIVE DISORDER
     Route: 065
     Dates: start: 20081125, end: 20090715
  8. LEVETIRACETAM [Concomitant]
     Indication: PRODUCT USED FOR UNKNOWN INDICATION
  9. LEVOTHYROXINE [Concomitant]
     Indication: PRODUCT USED FOR UNKNOWN INDICATION
  10. ATIVAN [Concomitant]
     Indication: ANXIETY
     Route: 065
  11. OMEPRAZOLE [Concomitant]
     Indication: DYSPEPSIA
     Route: 065
  12. OXYCODONE [Concomitant]
     Indication: PAIN
     Route: 065
  13. EFFEXOR [Concomitant]
     Indication: DEPRESSION
     Route: 065
  14. LEVOXYL [Concomitant]
     Indication: HYPOTHYROIDISM
     Route: 065
     Dates: start: 20040426
  15. HYDROMORPHONE [Concomitant]
     Indication: BACK PAIN
     Route: 065
     Dates: start: 20090406
  16. BUPIVACAINE [Concomitant]
     Indication: BACK PAIN
     Route: 065
     Dates: start: 20090406
  17. CLONIDINE [Concomitant]
     Indication: BACK PAIN
     Route: 065
     Dates: start: 20090406
  18. AZITHROMYCIN [Concomitant]
     Route: 065
     Dates: start: 20090708, end: 20090805
  19. MIRALAX [Concomitant]
     Indication: CONSTIPATION
     Route: 065
     Dates: start: 20070126
  20. NORMAL SALINE [Concomitant]
     Indication: DEHYDRATION
     Route: 065
     Dates: start: 20090614, end: 20090615
  21. TORADOL [Concomitant]
     Indication: PLEURITIC PAIN
     Route: 065
     Dates: start: 20090625, end: 20090629
  22. OXYCONTIN [Concomitant]
     Indication: PLEURITIC PAIN
     Route: 065
     Dates: start: 20090625, end: 20090629
  23. INDOMETHACIN [Concomitant]
     Indication: PAIN
     Route: 065
     Dates: start: 20090629, end: 20090708
  24. MIRAPEX [Concomitant]
     Route: 065
     Dates: start: 20090715, end: 20100405
  25. AMBIEN [Concomitant]
     Indication: INSOMNIA
     Route: 065
     Dates: start: 20090715
  26. SENNA [Concomitant]
     Indication: CONSTIPATION
     Route: 065
     Dates: start: 20080826

REACTIONS (1)
  - Pneumonia [Recovered/Resolved]
